FAERS Safety Report 9515541 (Version 1)
Quarter: 2013Q3

REPORT INFORMATION
  Report Type: Spontaneous
  Country: FR (occurrence: FR)
  Receive Date: 20130911
  Receipt Date: 20130911
  Transmission Date: 20140515
  Serious: Yes (Death)
  Sender: FDA-Public Use
  Company Number: PHHY2013FR099684

PATIENT
  Age: 78 Year
  Sex: Female

DRUGS (2)
  1. ACLASTA [Suspect]
     Indication: OSTEOPOROSIS
     Dosage: 5 MG, UNK
     Route: 042
     Dates: start: 20101007
  2. CORTICOSTEROIDS [Concomitant]
     Dosage: LONG TERM

REACTIONS (2)
  - Bradycardia [Fatal]
  - Torsade de pointes [Fatal]
